FAERS Safety Report 12751017 (Version 1)
Quarter: 2016Q3

REPORT INFORMATION
  Report Type: Spontaneous
  Country: US (occurrence: US)
  Receive Date: 20160915
  Receipt Date: 20160915
  Transmission Date: 20161109
  Serious: No
  Sender: FDA-Public Use
  Company Number: US-ASTELLAS-2016US001890

PATIENT
  Age: 90 Year
  Sex: Male

DRUGS (1)
  1. XTANDI [Suspect]
     Active Substance: ENZALUTAMIDE
     Indication: PROSTATE CANCER
     Route: 048
     Dates: start: 20151211, end: 20151218

REACTIONS (5)
  - Hypersomnia [Unknown]
  - Asthenia [Recovered/Resolved]
  - Vertigo [Recovered/Resolved]
  - Peripheral swelling [Unknown]
  - Adverse event [Unknown]

NARRATIVE: CASE EVENT DATE: 20151218
